FAERS Safety Report 4643814-5 (Version None)
Quarter: 2005Q2

REPORT INFORMATION
  Report Type: 
  Country: None (occurrence: None)
  Receive Date: 20050422
  Receipt Date: 20050422
  Transmission Date: 20051028
  Serious: Yes (Other)
  Sender: FDA-Public Use
  Company Number: None

PATIENT
  Age: 85 Year
  Sex: Male
  Weight: 64.7 kg

DRUGS (5)
  1. ZOCOR [Suspect]
  2. FOSINOPRIL NA [Concomitant]
  3. MULTI-VITAMIN [Concomitant]
  4. ASPIRIN [Concomitant]
  5. MILK OF MAGNESIA [Concomitant]

REACTIONS (1)
  - HEPATIC ENZYME INCREASED [None]
